FAERS Safety Report 7031102-1 (Version None)
Quarter: 2010Q4

REPORT INFORMATION
  Report Type: 
  Country: None (occurrence: None)
  Receive Date: 20101001
  Receipt Date: 20100923
  Transmission Date: 20110411
  Serious: Yes (Hospitalization, Other)
  Sender: FDA-Public Use
  Company Number: A-CH2010-34400

PATIENT
  Age: 35 Year
  Sex: Male

DRUGS (2)
  1. ZAVESCA [Suspect]
     Indication: GAUCHER'S DISEASE
     Dosage: 100 MG, TID, ORAL
     Route: 048
     Dates: start: 20081219, end: 20090301
  2. ZAVESCA [Suspect]
     Indication: GAUCHER'S DISEASE
     Dosage: 100 MG, TID, ORAL
     Route: 048
     Dates: start: 20090301

REACTIONS (1)
  - BONE PAIN [None]
